FAERS Safety Report 12336449 (Version 2)
Quarter: 2016Q3

REPORT INFORMATION
  Report Type: Spontaneous
  Country: NO (occurrence: NO)
  Receive Date: 20160505
  Receipt Date: 20160913
  Transmission Date: 20161109
  Serious: Yes (Death)
  Sender: FDA-Public Use
  Company Number: NO-ACCORD-040312

PATIENT
  Age: 51 Year
  Sex: Female

DRUGS (11)
  1. VENLAFAXINE/VENLAFAXINE HYDROCHLORIDE [Suspect]
     Active Substance: VENLAFAXINE HYDROCHLORIDE
  2. PARACETAMOL [Suspect]
     Active Substance: ACETAMINOPHEN
  3. QUETIAPINE. [Suspect]
     Active Substance: QUETIAPINE
  4. CODEINE [Suspect]
     Active Substance: CODEINE
  5. ZOPICLONE [Suspect]
     Active Substance: ZOPICLONE
  6. PREGABALIN. [Suspect]
     Active Substance: PREGABALIN
  7. OXAZEPAM. [Suspect]
     Active Substance: OXAZEPAM
  8. MIRTAZAPINE. [Suspect]
     Active Substance: MIRTAZAPINE
  9. MORPHINE [Suspect]
     Active Substance: MORPHINE
  10. DIAZEPAM. [Suspect]
     Active Substance: DIAZEPAM
  11. NORDAZEPAM [Suspect]
     Active Substance: NORDAZEPAM

REACTIONS (1)
  - Toxicity to various agents [Fatal]
